FAERS Safety Report 5339995-0 (Version None)
Quarter: 2007Q2

REPORT INFORMATION
  Report Type: 
  Country: None (occurrence: None)
  Receive Date: 20070405
  Receipt Date: 20061103
  Transmission Date: 20071010
  Serious: No
  Sender: FDA-Public Use
  Company Number: US200611000864

PATIENT
  Age: 35 Year
  Sex: Female

DRUGS (5)
  1. CYMBALTA [Suspect]
     Indication: DEPRESSION
     Dosage: 60 MG, EACH MORNING, ORAL
     Route: 048
     Dates: start: 20060601
  2. CELEXA [Concomitant]
  3. WELLBUTRIN [Concomitant]
  4. PRILOSEC [Concomitant]
  5. REQUIP [Concomitant]

REACTIONS (7)
  - BRUXISM [None]
  - DYSKINESIA [None]
  - LYMPHADENOPATHY [None]
  - NIGHT SWEATS [None]
  - PAIN IN JAW [None]
  - TACHYCARDIA [None]
  - TREMOR [None]
